FAERS Safety Report 10450747 (Version 1)
Quarter: 2014Q3

REPORT INFORMATION
  Report Type: Spontaneous
  Country: US (occurrence: US)
  Receive Date: 20140912
  Receipt Date: 20140912
  Transmission Date: 20150326
  Serious: Yes (Death, Other)
  Sender: FDA-Public Use
  Company Number: US-MYLAN-2014M1004216

PATIENT

DRUGS (3)
  1. MELPHALAN [Suspect]
     Active Substance: MELPHALAN
     Indication: OFF LABEL USE
  2. MELPHALAN [Suspect]
     Active Substance: MELPHALAN
     Indication: MALIGNANT MELANOMA
     Route: 065
  3. DACTINOMYCIN [Suspect]
     Active Substance: DACTINOMYCIN
     Indication: MALIGNANT MELANOMA
     Route: 065

REACTIONS (3)
  - Erythema [Unknown]
  - Pain [Unknown]
  - Swelling [Unknown]
